FAERS Safety Report 15377206 (Version 4)
Quarter: 2018Q4

REPORT INFORMATION
  Report Type: Spontaneous
  Country: US (occurrence: US)
  Receive Date: 20180913
  Receipt Date: 20181112
  Transmission Date: 20190204
  Serious: Yes (Hospitalization)
  Sender: FDA-Public Use
  Company Number: US-PFIZER INC-2018365886

PATIENT
  Age: 62 Year
  Sex: Female

DRUGS (3)
  1. ESTRING [Suspect]
     Active Substance: ESTRADIOL
     Indication: ATROPHIC VULVOVAGINITIS
     Dosage: UNK, [USED IT FOR 2 DAYS, 2 NIGHTS]
  2. ESTRING [Suspect]
     Active Substance: ESTRADIOL
     Indication: ATROPHIC VULVOVAGINITIS
     Dosage: UNK, [1-2 DAYS]
  3. ESTRING [Suspect]
     Active Substance: ESTRADIOL
     Dosage: UNK (1 VAGINAL RING)
     Route: 067
     Dates: start: 20180907, end: 20180911

REACTIONS (7)
  - Vaginal infection [Unknown]
  - Pruritus [Recovered/Resolved]
  - Vulvovaginal burning sensation [Unknown]
  - Vulvovaginal discomfort [Unknown]
  - Vaginal discharge [Recovered/Resolved]
  - Drug hypersensitivity [Unknown]
  - Vulvovaginal pruritus [Unknown]

NARRATIVE: CASE EVENT DATE: 20180907
